FAERS Safety Report 5133856-8 (Version None)
Quarter: 2006Q4

REPORT INFORMATION
  Report Type: 
  Country: None (occurrence: None)
  Receive Date: 20061018
  Receipt Date: 20060927
  Transmission Date: 20070319
  Serious: Yes (Other)
  Sender: FDA-Public Use
  Company Number: US200610000217

PATIENT
  Age: 32 Year
  Sex: Male

DRUGS (1)
  1. STRATTERA [Suspect]
     Dosage: 80 MG
     Dates: start: 20060601, end: 20060801

REACTIONS (2)
  - ALANINE AMINOTRANSFERASE INCREASED [None]
  - ASPARTATE AMINOTRANSFERASE INCREASED [None]
